FAERS Safety Report 12717449 (Version 3)
Quarter: 2016Q4

REPORT INFORMATION
  Report Type: Report from Study
  Country: None (occurrence: PT)
  Receive Date: 20160906
  Receipt Date: 20161104
  Transmission Date: 20170207
  Serious: Yes (Hospitalization, Other)
  Sender: FDA-Public Use
  Company Number: PT-ABBVIE-16K-130-1717181-00

PATIENT
  Age: 59 Year
  Sex: Female

DRUGS (6)
  1. LEPICORTINOLO [Concomitant]
     Active Substance: PREDNISOLONE
     Indication: PSORIATIC ARTHROPATHY
     Route: 048
     Dates: start: 2016, end: 2016
  2. HUMIRA [Suspect]
     Active Substance: ADALIMUMAB
     Indication: PSORIATIC ARTHROPATHY
     Route: 058
     Dates: start: 20160805
  3. HUMIRA [Suspect]
     Active Substance: ADALIMUMAB
     Indication: PSORIATIC ARTHROPATHY
     Route: 058
     Dates: start: 20160225, end: 20160609
  4. LEPICORTINOLO [Concomitant]
     Active Substance: PREDNISOLONE
     Route: 048
     Dates: start: 20160805
  5. LEPICORTINOLO [Concomitant]
     Active Substance: PREDNISOLONE
     Route: 048
     Dates: start: 2016
  6. VITAMIN B12 [Concomitant]
     Active Substance: CYANOCOBALAMIN
     Indication: PRODUCT USED FOR UNKNOWN INDICATION
     Dates: start: 201610

REACTIONS (11)
  - Deafness [Recovered/Resolved]
  - Obesity [Recovering/Resolving]
  - Mastoiditis [Not Recovered/Not Resolved]
  - Nasal inflammation [Not Recovered/Not Resolved]
  - Tympanic membrane perforation [Recovered/Resolved]
  - Myringitis [Recovered/Resolved]
  - Anosmia [Not Recovered/Not Resolved]
  - Anosmia [Unknown]
  - Tinnitus [Recovered/Resolved]
  - Ear infection [Recovered/Resolved]
  - Myringitis [Not Recovered/Not Resolved]

NARRATIVE: CASE EVENT DATE: 2016
